FAERS Safety Report 16759934 (Version 1)
Quarter: 2019Q3

REPORT INFORMATION
  Report Type: Spontaneous
  Country: JP (occurrence: JP)
  Receive Date: 20190830
  Receipt Date: 20190830
  Transmission Date: 20191005
  Serious: Yes (Other)
  Sender: FDA-Public Use
  Company Number: JP-PFIZER INC-2019370645

PATIENT
  Age: 65 Year
  Sex: Male

DRUGS (2)
  1. CELECOX [Suspect]
     Active Substance: CELECOXIB
     Indication: BACK PAIN
     Dosage: UNK UNK, TWICE DAILY, AFTER BREAKFAST AND SUPPER
     Route: 048
  2. CELECOX [Suspect]
     Active Substance: CELECOXIB
     Dosage: 2 DF, AS NEEDED (70 DOSES)
     Route: 048
     Dates: start: 201710

REACTIONS (2)
  - Off label use [Unknown]
  - Loss of consciousness [Unknown]
